FAERS Safety Report 8808592 (Version 1)
Quarter: 2012Q4

REPORT INFORMATION
  Report Type: 
  Country: US (occurrence: US)
  Receive Date: 20120926
  Receipt Date: 20120926
  Transmission Date: 20130627
  Serious: No
  Sender: FDA-Public Use
  Company Number: US-PFIZER INC-2012001189

PATIENT
  Sex: Male

DRUGS (2)
  1. TIKOSYN [Suspect]
     Dosage: UNK
  2. LEVAQUIN [Interacting]
     Indication: UPPER RESPIRATORY TRACT INFECTION
     Dosage: 2 DF, UNK

REACTIONS (2)
  - Upper respiratory tract infection [Unknown]
  - Labelled drug-drug interaction medication error [Unknown]
